FAERS Safety Report 10345763 (Version 2)
Quarter: 2014Q3

REPORT INFORMATION
  Report Type: Spontaneous
  Country: US (occurrence: US)
  Receive Date: 20140728
  Receipt Date: 20140728
  Transmission Date: 20150326
  Serious: Yes (Life-Threatening, Hospitalization, Other)
  Sender: FDA-Public Use
  Company Number: US-009507513-2011SP051277

PATIENT
  Sex: Female
  Weight: 68.4 kg

DRUGS (2)
  1. NUVARING [Suspect]
     Active Substance: ETHINYL ESTRADIOL\ETONOGESTREL
     Dates: start: 200707, end: 20081124
  2. NUVARING [Suspect]
     Active Substance: ETHINYL ESTRADIOL\ETONOGESTREL
     Indication: CONTRACEPTION
     Dates: start: 2002, end: 2006

REACTIONS (9)
  - Vulvovaginal discomfort [Unknown]
  - Depression [Unknown]
  - Deep vein thrombosis [Recovered/Resolved]
  - Muscle strain [Unknown]
  - Generalised anxiety disorder [Unknown]
  - Headache [Unknown]
  - Urinary tract infection [Unknown]
  - Pulmonary embolism [Recovered/Resolved]
  - Insomnia [Unknown]

NARRATIVE: CASE EVENT DATE: 20070907
